FAERS Safety Report 7501689-0 (Version None)
Quarter: 2011Q2

REPORT INFORMATION
  Report Type: 
  Country: None (occurrence: None)
  Receive Date: 20110525
  Receipt Date: 20110518
  Transmission Date: 20111010
  Serious: Yes (Death)
  Sender: FDA-Public Use
  Company Number: US-BRISTOL-MYERS SQUIBB COMPANY-15759574

PATIENT
  Age: 68 Year
  Sex: Female
  Weight: 59 kg

DRUGS (16)
  1. DITROPAN XL [Concomitant]
     Dates: start: 19950101
  2. ESTRADIOL [Concomitant]
     Dates: start: 19950101
  3. FOLIC ACID [Concomitant]
     Dates: start: 20110405
  4. PROMETHAZINE [Concomitant]
     Dates: start: 20110322
  5. SODIUM CROMOGLICATE [Concomitant]
     Dates: start: 20110101
  6. DEXAMETHASONE [Concomitant]
     Dates: start: 20110405
  7. ACETYLSALICYLIC ACID SRT [Concomitant]
     Dates: start: 20110322
  8. VERPAMIL HCL [Concomitant]
     Dates: start: 19900101
  9. COMPAZINE [Concomitant]
     Dates: start: 20110405
  10. PRILOSEC [Concomitant]
     Dates: start: 19990101
  11. XANAX [Concomitant]
     Dates: start: 19900101
  12. VITAMIN B-12 [Concomitant]
     Dates: start: 20110405
  13. MECLIZINE HCL [Concomitant]
     Dates: start: 20110101
  14. CISPLATIN [Suspect]
     Indication: NON-SMALL CELL LUNG CANCER
     Dosage: LAST DOSE:2MAY11
     Route: 042
     Dates: start: 20110411, end: 20110502
  15. PEMETREXED DISODIUM [Suspect]
     Indication: NON-SMALL CELL LUNG CANCER
     Dosage: LAST DOSE:2MAY11
     Route: 042
     Dates: start: 20110411, end: 20110502
  16. LEVOTHYROXINE SODIUM [Concomitant]
     Dates: start: 19980101

REACTIONS (1)
  - CARDIO-RESPIRATORY ARREST [None]
